FAERS Safety Report 17126917 (Version 3)
Quarter: 2019Q4

REPORT INFORMATION
  Report Type: Spontaneous
  Country: US (occurrence: US)
  Receive Date: 20191209
  Receipt Date: 20191209
  Transmission Date: 20200122
  Serious: No
  Sender: FDA-Public Use
  Company Number: US-TEVA-2019-US-1147992

PATIENT
  Age: 27 Year
  Sex: Female
  Weight: 54 kg

DRUGS (1)
  1. AJOVY [Suspect]
     Active Substance: FREMANEZUMAB-VFRM
     Indication: MIGRAINE

REACTIONS (9)
  - Vomiting [Unknown]
  - Dizziness [Unknown]
  - Chromaturia [Unknown]
  - Back pain [Unknown]
  - Diarrhoea [Unknown]
  - Vision blurred [Unknown]
  - Alopecia [Unknown]
  - Nausea [Unknown]
  - Impaired work ability [Unknown]

NARRATIVE: CASE EVENT DATE: 20190523
